FAERS Safety Report 9463114 (Version 2)
Quarter: 2013Q3

REPORT INFORMATION
  Report Type: Spontaneous
  Country: ZA (occurrence: ZA)
  Receive Date: 20130816
  Receipt Date: 20130822
  Transmission Date: 20140515
  Serious: Yes (Other)
  Sender: FDA-Public Use
  Company Number: ZA-B.I. PHARMACEUTICALS,INC./RIDGEFIELD-2013-BI-24241ZA

PATIENT
  Sex: Male
  Weight: 101 kg

DRUGS (2)
  1. COPRITOR [Suspect]
     Indication: HYPERTENSION
     Dosage: STRENGTH: 80/12.5 MG, DAILY DOSE:  80/12.5 MG
     Dates: start: 2005, end: 201307
  2. DISPRIN [Concomitant]
     Dosage: DOSE PER APPLICATION:100

REACTIONS (2)
  - Atrial fibrillation [Recovered/Resolved]
  - Cerebrovascular accident [Recovered/Resolved]
